FAERS Safety Report 5327706-4 (Version None)
Quarter: 2007Q2

REPORT INFORMATION
  Report Type: 
  Country: None (occurrence: None)
  Receive Date: 20070517
  Receipt Date: 20070515
  Transmission Date: 20071010
  Serious: Yes (Hospitalization)
  Sender: FDA-Public Use
  Company Number: US-MERCK-0703USA01344

PATIENT
  Age: 40 Year
  Sex: Female
  Weight: 121 kg

DRUGS (2)
  1. JANUVIA [Suspect]
     Indication: DIABETES MELLITUS
     Route: 048
     Dates: start: 20061201, end: 20061201
  2. ACTOPLUS MET [Concomitant]
     Route: 065

REACTIONS (1)
  - MIGRAINE [None]
